FAERS Safety Report 10967749 (Version 1)
Quarter: 2015Q1

REPORT INFORMATION
  Report Type: Spontaneous
  Country: US (occurrence: None)
  Receive Date: 20150226
  Receipt Date: 20150226
  Transmission Date: 20150721
  Serious: No
  Sender: FDA-Public Use
  Company Number: TPA2010A04794

PATIENT
  Sex: Male

DRUGS (3)
  1. ULORIC [Suspect]
     Active Substance: FEBUXOSTAT
     Indication: GOUT
     Route: 048
     Dates: start: 20100730
  2. IBUPROFEN (IBUPROFEN) [Concomitant]
     Active Substance: IBUPROFEN
  3. ULORIC [Suspect]
     Active Substance: FEBUXOSTAT
     Indication: BLOOD URIC ACID INCREASED
     Route: 048
     Dates: start: 20100730

REACTIONS (3)
  - Joint effusion [None]
  - Gout [None]
  - Muscle tightness [None]
